FAERS Safety Report 12073040 (Version 1)
Quarter: 2016Q1

REPORT INFORMATION
  Report Type: Spontaneous
  Country: US (occurrence: US)
  Receive Date: 20160212
  Receipt Date: 20160212
  Transmission Date: 20160526
  Serious: No
  Sender: FDA-Public Use
  Company Number: US-PFIZER INC-2016031397

PATIENT
  Age: 37 Year
  Sex: Male
  Weight: 74.84 kg

DRUGS (1)
  1. ZITHROMAX [Suspect]
     Active Substance: AZITHROMYCIN DIHYDRATE
     Indication: INFLUENZA
     Dosage: 250 MG, 1X/DAY

REACTIONS (9)
  - Constipation [Unknown]
  - Decreased appetite [Unknown]
  - Paraesthesia [Not Recovered/Not Resolved]
  - Fatigue [Recovered/Resolved]
  - Vomiting [Recovered/Resolved]
  - Diarrhoea [Unknown]
  - Gastrointestinal disorder [Recovered/Resolved]
  - Faeces discoloured [Recovered/Resolved]
  - Rash generalised [Not Recovered/Not Resolved]
